FAERS Safety Report 14473175 (Version 1)
Quarter: 2018Q1

REPORT INFORMATION
  Report Type: Spontaneous
  Country: US (occurrence: US)
  Receive Date: 20180201
  Receipt Date: 20180201
  Transmission Date: 20180509
  Serious: No
  Sender: FDA-Public Use
  Company Number: US-AUROBINDO-AUR-APL-2017-31394

PATIENT
  Age: 3 Year
  Sex: Female

DRUGS (1)
  1. CEFDINIR ORAL SUSPENSION [Suspect]
     Active Substance: CEFDINIR
     Indication: PNEUMONIA
     Dosage: UNK
     Route: 048
     Dates: start: 20170315, end: 20170315

REACTIONS (2)
  - Rash [Not Recovered/Not Resolved]
  - Cough [Recovering/Resolving]

NARRATIVE: CASE EVENT DATE: 20170315
